FAERS Safety Report 4755431-7 (Version None)
Quarter: 2005Q3

REPORT INFORMATION
  Report Type: 
  Country: None (occurrence: None)
  Receive Date: 20050826
  Receipt Date: 20050826
  Transmission Date: 20060218
  Serious: Yes (Hospitalization, Other)
  Sender: FDA-Public Use
  Company Number: None

PATIENT
  Age: 60 Year
  Sex: Male
  Weight: 93.1 kg

DRUGS (11)
  1. RITUXIMAB [Suspect]
     Indication: CHRONIC LYMPHOCYTIC LEUKAEMIA
     Dosage: 806 MG IV
     Route: 042
     Dates: start: 20050824
  2. RITUXIMAB [Suspect]
     Indication: CHRONIC LYMPHOCYTIC LEUKAEMIA
     Dosage: 100 MG IV
     Route: 042
     Dates: start: 20050822
  3. CYCLOPHOSPHAMIDE [Suspect]
     Indication: CHRONIC LYMPHOCYTIC LEUKAEMIA
     Dosage: 1290 MG IV
     Route: 042
     Dates: start: 20050822
  4. PENTOSTATIN [Suspect]
     Indication: CHRONIC LYMPHOCYTIC LEUKAEMIA
     Dosage: 8. 5 MG IV
     Route: 042
     Dates: start: 20050822
  5. ALLOPURINOL [Concomitant]
  6. ACYCLOVIR [Concomitant]
  7. BACTRIM DS [Concomitant]
  8. MULTI-VITAMIN [Concomitant]
  9. ZOCOR [Concomitant]
  10. COMPAZINE [Concomitant]
  11. ZOFRAN [Concomitant]

REACTIONS (6)
  - BODY TEMPERATURE INCREASED [None]
  - CHILLS [None]
  - METABOLIC DISORDER [None]
  - NAUSEA [None]
  - SOMNOLENCE [None]
  - VOMITING [None]
